FAERS Safety Report 6250682-7 (Version None)
Quarter: 2009Q2

REPORT INFORMATION
  Report Type: 
  Country: None (occurrence: None)
  Receive Date: 20090630
  Receipt Date: 20090625
  Transmission Date: 20091009
  Serious: Yes (Life-Threatening, Hospitalization)
  Sender: FDA-Public Use
  Company Number: FR-WYE-G02940009

PATIENT
  Sex: Male

DRUGS (7)
  1. ADVIL [Suspect]
     Dosage: ONE SINGLE DOSE OF 400 MG
     Route: 048
     Dates: start: 20081113, end: 20081113
  2. CERTICAN [Suspect]
     Dates: start: 20081003, end: 20081114
  3. XANAX [Concomitant]
     Dosage: 0.50 MG TOTAL DAILY
     Route: 048
  4. COTAREG [Concomitant]
     Dosage: UNKNOWN
     Route: 048
  5. AMLODIPINE [Concomitant]
     Dosage: UNKNOWN
     Route: 048
  6. EFFEXOR [Suspect]
     Route: 048
  7. PLAVIX [Suspect]
     Indication: NERVOUS SYSTEM DISORDER
     Route: 048
     Dates: start: 20070101

REACTIONS (1)
  - GASTRIC ULCER HAEMORRHAGE [None]
